FAERS Safety Report 23321311 (Version 4)
Quarter: 2024Q1

REPORT INFORMATION
  Report Type: Spontaneous
  Country: AU (occurrence: AU)
  Receive Date: 20231220
  Receipt Date: 20240229
  Transmission Date: 20240409
  Serious: Yes (Hospitalization, Other)
  Sender: FDA-Public Use
  Company Number: AU-AMGEN-AUSSP2023223028

PATIENT
  Age: 74 Year
  Sex: Female

DRUGS (38)
  1. PROLIA [Suspect]
     Active Substance: DENOSUMAB
     Indication: Osteoporosis
     Dosage: 60 MILLIGRAM PER ML
     Route: 065
  2. METHYLPREDNISOLONE ACEPONATE [Concomitant]
     Active Substance: METHYLPREDNISOLONE ACEPONATE
     Dosage: 0.1 PERCENT, QD
  3. AMOXICILLIN [Concomitant]
     Active Substance: AMOXICILLIN
     Dosage: 500 MILLIGRAM,4X5OOMG TAKE 2 GR STAT ONE HOUR BEFORE PROCEDURE.
  4. MIRABEGRON [Concomitant]
     Active Substance: MIRABEGRON
     Dosage: 25 MILLIGRAM, QD
  5. CETALKONIUM\GLYCERIN\MINERAL OIL\POLOXAMER 188\TROMETHAMINE\TYLOXAPOL [Concomitant]
     Active Substance: CETALKONIUM\GLYCERIN\MINERAL OIL\POLOXAMER 188\TROMETHAMINE\TYLOXAPOL
     Dosage: 1 DROP, QD
  6. MELATONIN [Concomitant]
     Active Substance: MELATONIN
     Dosage: 2 MILLIGRAM,1/4 BEFORE BED.
  7. PERINDOPRIL [Concomitant]
     Active Substance: PERINDOPRIL
     Dosage: 5 MILLIGRAM, QD, 1 TABLET IN THE MOMING.
  8. Dulcolax [Concomitant]
     Dosage: 5 MILLIGRAM, QD, I TABLET BEFORE BED.
  9. BUDESONIDE\FORMOTEROL [Concomitant]
     Active Substance: BUDESONIDE\FORMOTEROL
     Dosage: 200MCG;6MCG,2 DOSES TWICE A DAY.
  10. ELOCON [Concomitant]
     Active Substance: MOMETASONE FUROATE
     Dosage: 0.1 PERCENT, QD
  11. FERRO F [Concomitant]
     Dosage: 310MG;350MCG, I TABLET EVERY 2N DAY.
  12. CARBOHYDRATES\FATTY ACIDS\MINERALS\PROTEIN\VITAMINS [Concomitant]
     Active Substance: CARBOHYDRATES\FATTY ACIDS\MINERALS\PROTEIN\VITAMINS
     Dosage: 2 DOSES DAILY
  13. HYDROXOCOBALAMIN [Concomitant]
     Active Substance: HYDROXOCOBALAMIN
     Dosage: 1 MILLIGRAM, Q3MO
  14. NOCDURNA [Concomitant]
     Active Substance: DESMOPRESSIN ACETATE
     Dosage: 25 MICROGRAM, 1/2 BEFORE BED
  15. NORSPAN [Concomitant]
     Active Substance: BUPRENORPHINE
     Dosage: 5.5 MICROGRAM, QWK,1 PATCH ONCE A WEEK.
  16. ACETAMINOPHEN [Concomitant]
     Active Substance: ACETAMINOPHEN
     Dosage: 665 MILLIGRAM,2 TABL THREE TIMES A DAY
  17. SYSTANE (HYPROMELLOSE 2910 (4000 MPA.S)) [Concomitant]
     Active Substance: HYPROMELLOSE 2910 (4000 MPA.S)
     Dosage: 0.4, 0.3 PERCENT, 2 DROPS DAILY
  18. NALOXONE HYDROCHLORIDE\OXYCODONE HYDROCHLORIDE [Concomitant]
     Active Substance: NALOXONE HYDROCHLORIDE\OXYCODONE HYDROCHLORIDE
     Dosage: 2.5MG; 1.25MG
  19. Ural [Concomitant]
     Dosage: 4 GRAM, QD
  20. VAGIFEM [Concomitant]
     Active Substance: ESTRADIOL
     Dosage: 10 MICROGRAM,TWICE A WEEK.
  21. VENTOLIN [Concomitant]
     Active Substance: ALBUTEROL SULFATE
     Dosage: 100 MICROGRAM,2-4 PUFFS THREE TIMES A DAY
  22. PNEUMOCOCCAL VACCINE POLYVALENT NOS [Concomitant]
     Active Substance: PNEUMOCOCCAL VACCINE POLYVALENT
     Dosage: 23 VALENT
     Dates: start: 20120606
  23. FLUARIX TETRA [Concomitant]
     Active Substance: INFLUENZA VIRUS VACCINE
     Dosage: UNK
     Dates: start: 20160414
  24. FLUARIX TETRA [Concomitant]
     Active Substance: INFLUENZA VIRUS VACCINE
     Dosage: UNK
     Dates: start: 20170412
  25. TYPHIM VI [Concomitant]
     Active Substance: SALMONELLA TYPHI TY2 VI POLYSACCHARIDE ANTIGEN
     Dosage: UNK
     Dates: start: 20171219
  26. FLUAD NOS [Concomitant]
     Active Substance: INFLUENZA VIRUS VACCINE
     Dosage: UNK
     Dates: start: 20180512
  27. FLUAD NOS [Concomitant]
     Active Substance: INFLUENZA VIRUS VACCINE
     Dosage: UNK
     Dates: start: 20190513
  28. Fluad quad [Concomitant]
     Dosage: UNK
     Dates: start: 20200417
  29. Fluad quad [Concomitant]
     Dosage: UNK
     Dates: start: 20220708
  30. Fluad quad [Concomitant]
     Dosage: UNK
     Dates: start: 20230413
  31. ASTRAZENECA COVID-19 VACCINE [Concomitant]
     Active Substance: AZD-1222
     Dosage: UNK
     Dates: start: 20210503
  32. ASTRAZENECA COVID-19 VACCINE [Concomitant]
     Active Substance: AZD-1222
     Dosage: UNK
     Dates: start: 20210715
  33. ZOSTAVAX [Concomitant]
     Active Substance: VARICELLA-ZOSTER VIRUS STRAIN OKA/MERCK LIVE ANTIGEN
     Dosage: UNK
     Dates: start: 20210830
  34. COMIRNATY (TOZINAMERAN) [Concomitant]
     Active Substance: TOZINAMERAN
     Dosage: UNK
     Dates: start: 20220715
  35. COMIRNATY (TOZINAMERAN) [Concomitant]
     Active Substance: TOZINAMERAN
     Dosage: UNK
     Dates: start: 20240103
  36. Spikevax [Concomitant]
  37. ADACEL TDAP [Concomitant]
     Active Substance: TETANUS TOXOID, REDUCED DIPHTHERIA TOXOID AND ACELLULAR PERTUSSIS VACCINE ADSORBED, TDAP
     Dosage: UNK
     Dates: start: 20230710
  38. TYPHIM VI [Concomitant]
     Active Substance: SALMONELLA TYPHI TY2 VI POLYSACCHARIDE ANTIGEN
     Dosage: UNK
     Dates: start: 20230824

REACTIONS (11)
  - Spinal compression fracture [Unknown]
  - COVID-19 [Unknown]
  - Neck pain [Unknown]
  - Hypertension [Unknown]
  - Tooth disorder [Unknown]
  - Skin ulcer [Unknown]
  - Kyphoscoliosis [Unknown]
  - Joint dislocation [Unknown]
  - Lung disorder [Unknown]
  - Ill-defined disorder [Unknown]
  - Dyspepsia [Unknown]

NARRATIVE: CASE EVENT DATE: 20220502
